FAERS Safety Report 18733946 (Version 2)
Quarter: 2021Q1

REPORT INFORMATION
  Report Type: Spontaneous
  Country: US (occurrence: US)
  Receive Date: 20210113
  Receipt Date: 20210125
  Transmission Date: 20210419
  Serious: Yes (Hospitalization, Other)
  Sender: FDA-Public Use
  Company Number: US-ASTELLAS-2021US000930

PATIENT
  Age: 74 Year
  Sex: Male

DRUGS (7)
  1. VENETOCLAX. [Concomitant]
     Active Substance: VENETOCLAX
     Dosage: 100 MG, ONCE DAILY (DAY 1)
     Route: 048
     Dates: start: 20201002, end: 20201002
  2. GILTERITINIB [Suspect]
     Active Substance: GILTERITINIB
     Route: 048
     Dates: start: 20201219
  3. GILTERITINIB [Suspect]
     Active Substance: GILTERITINIB
     Indication: ACUTE MYELOID LEUKAEMIA
     Route: 048
     Dates: start: 20201109, end: 20201207
  4. GEMTUZUMAB OZOGAMICIN [Concomitant]
     Active Substance: GEMTUZUMAB OZOGAMICIN
     Indication: ACUTE MYELOID LEUKAEMIA
     Dosage: 4.5 MG, CYCLIC (DAYS 1, 4, 7)
     Route: 042
     Dates: start: 20201004, end: 20201010
  5. VENETOCLAX. [Concomitant]
     Active Substance: VENETOCLAX
     Dosage: 400 MG, ONCE DAILY (DAYS 1?25)
     Route: 048
     Dates: start: 20201004, end: 20201028
  6. VENETOCLAX. [Concomitant]
     Active Substance: VENETOCLAX
     Indication: ACUTE MYELOID LEUKAEMIA
     Dosage: 50 MG, ONCE DAILY (DAY ?2)
     Route: 048
     Dates: start: 20201001, end: 20201001
  7. VENETOCLAX. [Concomitant]
     Active Substance: VENETOCLAX
     Dosage: 200 MG, ONCE DAILY (DAY 0)
     Route: 048
     Dates: start: 20201003, end: 20201003

REACTIONS (6)
  - Tongue haematoma [Recovering/Resolving]
  - Pancytopenia [Not Recovered/Not Resolved]
  - Blindness [Unknown]
  - Rectal haemorrhage [Unknown]
  - Acute myeloid leukaemia [Unknown]
  - Anaemia [Unknown]

NARRATIVE: CASE EVENT DATE: 20201215
